FAERS Safety Report 4717695-5 (Version None)
Quarter: 2005Q3

REPORT INFORMATION
  Report Type: 
  Country: None (occurrence: None)
  Receive Date: 20050720
  Receipt Date: 20050412
  Transmission Date: 20060218
  Serious: Yes (Hospitalization, Disabling)
  Sender: FDA-Public Use
  Company Number: JP-SP-2005-00756

PATIENT
  Age: 67 Year
  Sex: Female

DRUGS (8)
  1. IMMUCYST [Suspect]
     Indication: BLADDER CANCER
     Route: 043
     Dates: start: 20040505, end: 20040623
  2. IMMUCYST [Suspect]
     Route: 043
     Dates: start: 20040505, end: 20040623
  3. IMMUCYST [Suspect]
     Route: 043
     Dates: start: 20040505, end: 20040623
  4. LOXOPROFEN SODIUM [Concomitant]
     Indication: CYSTITIS
     Route: 048
     Dates: start: 20040609, end: 20050410
  5. GLIBENCLAMIDE [Concomitant]
     Indication: DIABETES MELLITUS
     Dosage: 1 TAB/DAY
     Route: 048
     Dates: start: 19960101
  6. ATORVASTATIN CALCIUM [Concomitant]
     Indication: HYPERLIPIDAEMIA
     Route: 048
     Dates: start: 19970101
  7. CLOTIAZEPAM [Concomitant]
     Indication: INSOMNIA
     Route: 048
     Dates: start: 19960101
  8. TRIAZOLAM [Concomitant]
     Indication: INSOMNIA
     Route: 048
     Dates: start: 19960101

REACTIONS (5)
  - BLADDER STENOSIS [None]
  - CARCINOMA IN SITU OF BLADDER [None]
  - CYSTITIS [None]
  - DYSURIA [None]
  - POLLAKIURIA [None]
